FAERS Safety Report 6764478-0 (Version None)
Quarter: 2010Q2

REPORT INFORMATION
  Report Type: 
  Country: None (occurrence: None)
  Receive Date: 20100610
  Receipt Date: 20100604
  Transmission Date: 20101027
  Serious: Yes (Other)
  Sender: FDA-Public Use
  Company Number: US-SANOFI-AVENTIS-2010SA032787

PATIENT
  Sex: Female

DRUGS (2)
  1. LANTUS [Suspect]
     Dosage: DOSE:93 UNIT(S)
     Route: 058
  2. OPTICLICK [Suspect]
     Dates: start: 20050101

REACTIONS (1)
  - ARTHROPATHY [None]
